FAERS Safety Report 5746109-1 (Version None)
Quarter: 2008Q2

REPORT INFORMATION
  Report Type: 
  Country: None (occurrence: None)
  Receive Date: 20080522
  Receipt Date: 20080512
  Transmission Date: 20081010
  Serious: Yes (Hospitalization)
  Sender: FDA-Public Use
  Company Number: GR-ABBOTT-08P-066-0438652-00

PATIENT
  Sex: Male
  Weight: 78.2 kg

DRUGS (14)
  1. ZEMPLAR [Suspect]
     Indication: HYPERPARATHYROIDISM SECONDARY
     Route: 042
     Dates: start: 20070723
  2. HEPARIN-FRACTION, SODIUM SALT [Concomitant]
     Indication: ANTICOAGULANT THERAPY
     Route: 042
     Dates: start: 20040601
  3. CLOPIDOGREL [Concomitant]
     Indication: ANTICOAGULANT THERAPY
     Route: 048
     Dates: start: 20070401, end: 20080211
  4. EPOETIN BETA [Concomitant]
     Indication: RENAL FAILURE CHRONIC
     Route: 042
     Dates: start: 20040601
  5. BIOTIN [Concomitant]
     Indication: RENAL FAILURE CHRONIC
     Route: 042
     Dates: start: 20040601
  6. SACCHARATED IRON OXIDE [Concomitant]
     Indication: RENAL FAILURE CHRONIC
     Route: 042
     Dates: start: 20040601
  7. SUPERAMINE [Concomitant]
     Indication: RENAL FAILURE CHRONIC
     Route: 042
     Dates: start: 20040601
  8. NEUROBION [Concomitant]
     Indication: RENAL FAILURE CHRONIC
     Route: 042
     Dates: start: 20040601
  9. FOLIC ACID [Concomitant]
     Indication: RENAL FAILURE CHRONIC
     Route: 048
     Dates: start: 20040601
  10. RABEPRAZOLE SODIUM [Concomitant]
     Indication: DUODENAL ULCER
     Route: 048
     Dates: start: 20070401
  11. ATORVASTATIN CALCIUM [Concomitant]
     Indication: CORONARY ARTERY DISEASE
     Route: 048
     Dates: start: 20060801
  12. CARVEDILOL [Concomitant]
     Indication: CORONARY ARTERY DISEASE
     Route: 048
     Dates: start: 20070401
  13. FORSENOL [Concomitant]
     Indication: HYPERPHOSPHATAEMIA
     Route: 048
     Dates: start: 20070601
  14. SEVELAMER [Concomitant]
     Indication: HYPERPHOSPHATAEMIA
     Route: 048
     Dates: start: 20071024

REACTIONS (2)
  - HYDROCELE [None]
  - SCROTAL SWELLING [None]
